FAERS Safety Report 7019806-8 (Version None)
Quarter: 2010Q3

REPORT INFORMATION
  Report Type: 
  Country: None (occurrence: None)
  Receive Date: 20100909
  Receipt Date: 20100521
  Transmission Date: 20110219
  Serious: No
  Sender: FDA-Public Use
  Company Number: 2010SP028459

PATIENT
  Age: 30 Year
  Sex: Female

DRUGS (1)
  1. SAPHRIS [Suspect]
     Indication: PSYCHOTIC DISORDER
     Dosage: 5 MG ; BID ; SL
     Route: 060

REACTIONS (2)
  - ORAL DISCOMFORT [None]
  - WEIGHT INCREASED [None]
